FAERS Safety Report 4492421-6 (Version None)
Quarter: 2004Q4

REPORT INFORMATION
  Report Type: 
  Country: None (occurrence: None)
  Receive Date: 20041102
  Receipt Date: 20041102
  Transmission Date: 20050328
  Serious: Yes (Other)
  Sender: FDA-Public Use
  Company Number: None

PATIENT
  Age: 69 Year
  Sex: Female

DRUGS (5)
  1. DYAZIDE [Suspect]
     Dosage: UD
     Dates: start: 20040816, end: 20041026
  2. L-THYROXINE [Concomitant]
  3. ESTRADIOL [Concomitant]
  4. AMITRIPTYLINE HCL [Concomitant]
  5. DITROPAN XL [Concomitant]

REACTIONS (3)
  - DRUG EFFECT DECREASED [None]
  - PHARMACEUTICAL PRODUCT COMPLAINT [None]
  - SWELLING [None]
